FAERS Safety Report 12076334 (Version 1)
Quarter: 2016Q1

REPORT INFORMATION
  Report Type: Spontaneous
  Country: JP (occurrence: JP)
  Receive Date: 20160215
  Receipt Date: 20160215
  Transmission Date: 20160526
  Serious: Yes (Hospitalization, Other)
  Sender: FDA-Public Use
  Company Number: JP-SHIRE-JP201601390

PATIENT
  Age: 82 Year
  Sex: Male

DRUGS (1)
  1. FOSRENOL [Suspect]
     Active Substance: LANTHANUM CARBONATE
     Indication: PRODUCT USED FOR UNKNOWN INDICATION
     Dosage: UNK, UNKNOWN
     Route: 048

REACTIONS (5)
  - Haematochezia [Unknown]
  - Anaemia [Unknown]
  - Dyschezia [Unknown]
  - Constipation [Recovering/Resolving]
  - Large intestinal ulcer [Unknown]

NARRATIVE: CASE EVENT DATE: 201505
